FAERS Safety Report 24607653 (Version 1)
Quarter: 2024Q4

REPORT INFORMATION
  Report Type: Spontaneous
  Country: FR (occurrence: FR)
  Receive Date: 20241112
  Receipt Date: 20241112
  Transmission Date: 20250115
  Serious: Yes (Hospitalization)
  Sender: RANBAXY
  Company Number: FR-SUN PHARMACEUTICAL INDUSTRIES LTD-2024RR-477850

PATIENT
  Age: 33 Year
  Sex: Female
  Weight: 57 kg

DRUGS (11)
  1. GEMCITABINE [Suspect]
     Active Substance: GEMCITABINE
     Indication: Lymphoma
     Dosage: 1 DOSAGE FORM, TOTAL 1
     Route: 040
     Dates: start: 20240827
  2. GEMCITABINE [Suspect]
     Active Substance: GEMCITABINE
     Dosage: 1 DOSAGE FORM
     Route: 065
     Dates: start: 20240902
  3. GEMCITABINE [Suspect]
     Active Substance: GEMCITABINE
     Dosage: 1 DOSAGE FORM, TOTAL 1
     Route: 065
     Dates: start: 20240909
  4. GEMCITABINE [Suspect]
     Active Substance: GEMCITABINE
     Dosage: 1 DOSAGE FORM, TOTAL 1
     Route: 065
     Dates: start: 20240911
  5. OXALIPLATIN [Concomitant]
     Active Substance: OXALIPLATIN
     Indication: Product used for unknown indication
     Dosage: UNK
     Route: 065
  6. PEGASPARGASE [Concomitant]
     Active Substance: PEGASPARGASE
     Indication: Product used for unknown indication
     Dosage: UNK
     Route: 065
  7. BACTRIM [Concomitant]
     Active Substance: SULFAMETHOXAZOLE\TRIMETHOPRIM
     Indication: Product used for unknown indication
     Dosage: UNK
     Route: 065
  8. G-CSF HUMAIN RECOMBINANT [Concomitant]
     Indication: Product used for unknown indication
     Dosage: UNK
     Route: 065
  9. ANTITHROMBIN III HUMAN [Concomitant]
     Active Substance: ANTITHROMBIN III HUMAN
     Indication: Product used for unknown indication
     Dosage: UNK
     Route: 065
  10. PIPERACILLIN SODIUM\TAZOBACTAM SODIUM [Concomitant]
     Active Substance: PIPERACILLIN SODIUM\TAZOBACTAM SODIUM
     Indication: Product used for unknown indication
     Dosage: UNK
     Route: 065
  11. CEFTRIAXONE [Concomitant]
     Active Substance: CEFTRIAXONE
     Indication: Product used for unknown indication
     Dosage: UNK
     Route: 065

REACTIONS (1)
  - Thrombocytosis [Recovering/Resolving]

NARRATIVE: CASE EVENT DATE: 20240911
